FAERS Safety Report 7394285-X (Version None)
Quarter: 2011Q2

REPORT INFORMATION
  Report Type: 
  Country: None (occurrence: None)
  Receive Date: 20110405
  Receipt Date: 20110329
  Transmission Date: 20111010
  Serious: Yes (Hospitalization, Other)
  Sender: FDA-Public Use
  Company Number: US-ROCHE-521382

PATIENT
  Sex: Male
  Weight: 97.5 kg

DRUGS (4)
  1. ACCUTANE [Suspect]
     Dosage: FREQUENCY DECREASED TO QD
     Route: 048
     Dates: start: 19920611, end: 19920720
  2. ACCUTANE [Suspect]
     Route: 048
     Dates: start: 19930719, end: 19930821
  3. ACCUTANE [Suspect]
     Dosage: FREQUENCY DECREASED ON 11JUN1992
     Route: 048
     Dates: start: 19920504, end: 19920611
  4. ACCUTANE [Suspect]
     Dosage: RESTARTED ON BID DOSING
     Route: 048
     Dates: start: 19920720, end: 19920826

REACTIONS (21)
  - ANXIETY [None]
  - INFLAMMATORY BOWEL DISEASE [None]
  - ARTHRITIS [None]
  - COSTOCHONDRITIS [None]
  - SPINAL OSTEOARTHRITIS [None]
  - CROHN'S DISEASE [None]
  - INTERVERTEBRAL DISC DEGENERATION [None]
  - UNEVALUABLE EVENT [None]
  - ACNE [None]
  - GASTRITIS [None]
  - COLITIS ULCERATIVE [None]
  - MOUTH ULCERATION [None]
  - HYPOGONADISM [None]
  - HEPATIC STEATOSIS [None]
  - DEPRESSION [None]
  - BACK PAIN [None]
  - ENTERITIS [None]
  - POUCHITIS [None]
  - BLOOD TRIGLYCERIDES INCREASED [None]
  - VOMITING [None]
  - INSOMNIA [None]
